FAERS Safety Report 5797227-3 (Version None)
Quarter: 2008Q2

REPORT INFORMATION
  Report Type: 
  Country: None (occurrence: None)
  Receive Date: 20080627
  Receipt Date: 20080619
  Transmission Date: 20081010
  Serious: Yes (Death, Life-Threatening)
  Sender: FDA-Public Use
  Company Number: 2008JP002956

PATIENT
  Age: 85 Year
  Sex: Female

DRUGS (21)
  1. TACROLIMUS [Suspect]
     Indication: LUPUS NEPHRITIS
     Dosage: 1 MG, ORAL; 2 MG, ORAL; 1 MG, ORAL; 1 MG, ORAL;
     Route: 048
     Dates: start: 20071108, end: 20071125
  2. TACROLIMUS [Suspect]
     Indication: LUPUS NEPHRITIS
     Dosage: 1 MG, ORAL; 2 MG, ORAL; 1 MG, ORAL; 1 MG, ORAL;
     Route: 048
     Dates: start: 20071126, end: 20071214
  3. TACROLIMUS [Suspect]
     Indication: LUPUS NEPHRITIS
     Dosage: 1 MG, ORAL; 2 MG, ORAL; 1 MG, ORAL; 1 MG, ORAL;
     Route: 048
     Dates: start: 20071215, end: 20071221
  4. TACROLIMUS [Suspect]
     Indication: LUPUS NEPHRITIS
     Dosage: 1 MG, ORAL; 2 MG, ORAL; 1 MG, ORAL; 1 MG, ORAL;
     Route: 048
     Dates: start: 20080105, end: 20080210
  5. PREDNISOLONE [Suspect]
     Indication: LUPUS NEPHRITIS
     Dosage: 25 MG, ORAL; 20 MG, ORAL; 17.5 MG, UID/QD, ORAL; 15 MG, ORAL; 12.5 MG, ORAL
     Route: 048
     Dates: start: 20071120, end: 20071125
  6. PREDNISOLONE [Suspect]
     Indication: LUPUS NEPHRITIS
     Dosage: 25 MG, ORAL; 20 MG, ORAL; 17.5 MG, UID/QD, ORAL; 15 MG, ORAL; 12.5 MG, ORAL
     Route: 048
     Dates: start: 20071126, end: 20071202
  7. PREDNISOLONE [Suspect]
     Indication: LUPUS NEPHRITIS
     Dosage: 25 MG, ORAL; 20 MG, ORAL; 17.5 MG, UID/QD, ORAL; 15 MG, ORAL; 12.5 MG, ORAL
     Route: 048
     Dates: start: 20071203, end: 20071209
  8. PREDNISOLONE [Suspect]
     Indication: LUPUS NEPHRITIS
     Dosage: 25 MG, ORAL; 20 MG, ORAL; 17.5 MG, UID/QD, ORAL; 15 MG, ORAL; 12.5 MG, ORAL
     Route: 048
     Dates: start: 20071210, end: 20071214
  9. ATELEC (CILNIDIPINE) [Concomitant]
  10. LASIX [Concomitant]
  11. ZYLORIC [Concomitant]
  12. CRESTOR [Concomitant]
  13. ALFAROL (ALFACALCIDOL) [Concomitant]
  14. DIART (AZOSEMIDE) [Concomitant]
  15. FOSAMAC (ALENDRONATE SODIUM) [Concomitant]
  16. GASLON N (IRSOGLADINE MALEATE) [Concomitant]
  17. RABEPRAZOLE SODIUM [Concomitant]
  18. THYRADIN (THYROID) [Concomitant]
  19. ASPIRIN [Concomitant]
  20. PRODIF (FOSFLUCONAZOLE) [Concomitant]
  21. FUNGUARD (MICAFUNGIN) [Concomitant]

REACTIONS (7)
  - BLOOD BETA-D-GLUCAN INCREASED [None]
  - DYSURIA [None]
  - FUNGUS SEROLOGY TEST POSITIVE [None]
  - MALNUTRITION [None]
  - PNEUMONIA [None]
  - PULMONARY MYCOSIS [None]
  - RENAL FAILURE [None]
